FAERS Safety Report 6668431-7 (Version None)
Quarter: 2010Q2

REPORT INFORMATION
  Report Type: 
  Country: None (occurrence: None)
  Receive Date: 20100406
  Receipt Date: 20100325
  Transmission Date: 20101027
  Serious: Yes (Other)
  Sender: FDA-Public Use
  Company Number: PHHY2010CA07032

PATIENT
  Sex: Female
  Weight: 68.5 kg

DRUGS (4)
  1. ACLASTA [Suspect]
     Indication: OSTEOPOROSIS
     Dosage: 5 MG, UNK
     Route: 042
     Dates: start: 20100128
  2. NORVASC [Concomitant]
     Dosage: 5 MG, UNK
  3. TYLENOL-500 [Concomitant]
  4. MAVIK [Concomitant]
     Indication: HYPERTENSION
     Dosage: 2 MG OD
     Route: 048
     Dates: start: 20100114, end: 20100216

REACTIONS (3)
  - OCULAR HYPERAEMIA [None]
  - PAIN [None]
  - PHOTOPHOBIA [None]
